FAERS Safety Report 5294730-X (Version None)
Quarter: 2007Q2

REPORT INFORMATION
  Report Type: 
  Country: None (occurrence: None)
  Receive Date: 20070409
  Receipt Date: 20070409
  Transmission Date: 20071010
  Serious: Yes (Death, Hospitalization)
  Sender: FDA-Public Use
  Company Number: None

PATIENT
  Sex: Male
  Weight: 94 kg

DRUGS (2)
  1. FLUDARABINE [Suspect]
     Indication: STEM CELL TRANSPLANT
  2. BUSULFAN [Suspect]

REACTIONS (10)
  - ASTHENIA [None]
  - CANDIDIASIS [None]
  - DYSPNOEA [None]
  - EFFUSION [None]
  - FUNGAL INFECTION [None]
  - GENERAL PHYSICAL HEALTH DETERIORATION [None]
  - LUNG INFECTION [None]
  - PULMONARY OEDEMA [None]
  - TRANSFUSION REACTION [None]
  - VIRAL INFECTION [None]
